FAERS Safety Report 5663610-X (Version None)
Quarter: 2008Q1

REPORT INFORMATION
  Report Type: 
  Country: None (occurrence: None)
  Receive Date: 20080307
  Receipt Date: 20080303
  Transmission Date: 20080703
  Serious: Yes (Hospitalization)
  Sender: FDA-Public Use
  Company Number: 2008SP004448

PATIENT
  Age: 69 Year
  Sex: Female
  Weight: 92 kg

DRUGS (9)
  1. LONAFARNIB (S-P) [Suspect]
     Indication: GLIOBLASTOMA MULTIFORME
     Dosage: 250 MG; BID; 175 MG; BID;
     Dates: start: 20080204, end: 20080211
  2. LONAFARNIB (S-P) [Suspect]
     Indication: GLIOBLASTOMA MULTIFORME
     Dosage: 250 MG; BID; 175 MG; BID;
     Dates: start: 20080221
  3. TEMODAR [Suspect]
     Indication: GLIOBLASTOMA MULTIFORME
     Dosage: 150 MG/M2; PO
     Route: 048
     Dates: start: 20080204, end: 20080206
  4. KEPPRA [Concomitant]
  5. DIOVAN [Concomitant]
  6. LOTREL [Concomitant]
  7. LEVOXYL [Concomitant]
  8. LIPITOR [Concomitant]
  9. BONIVA [Concomitant]

REACTIONS (1)
  - RENAL FAILURE [None]
